FAERS Safety Report 4932098-6 (Version None)
Quarter: 2006Q1

REPORT INFORMATION
  Report Type: 
  Country: None (occurrence: None)
  Receive Date: 20060228
  Receipt Date: 20060215
  Transmission Date: 20060701
  Serious: Yes (Other)
  Sender: FDA-Public Use
  Company Number: 200514435BCC

PATIENT
  Age: 44 Year
  Sex: Female
  Weight: 122.4712 kg

DRUGS (2)
  1. ALEVE [Suspect]
     Indication: BACK PAIN
     Dosage: 440 MG, TOTAL DAILY; ORAL
     Route: 048
     Dates: start: 20051104
  2. EQUATE [Concomitant]

REACTIONS (4)
  - FALL [None]
  - HYPERSENSITIVITY [None]
  - LOSS OF CONSCIOUSNESS [None]
  - SOMNOLENCE [None]
